FAERS Safety Report 5094947-3 (Version None)
Quarter: 2006Q3

REPORT INFORMATION
  Report Type: 
  Country: None (occurrence: None)
  Receive Date: 20060901
  Receipt Date: 20060518
  Transmission Date: 20061208
  Serious: Yes (Death, Hospitalization, Disabling, Other)
  Sender: FDA-Public Use
  Company Number: PHBS2006JP07611

PATIENT
  Age: 61 Year
  Sex: Female
  Weight: 44 kg

DRUGS (3)
  1. TS 1 [Concomitant]
     Dosage: 100 MG/D
     Route: 047
     Dates: start: 20051129, end: 20060117
  2. AREDIA [Suspect]
     Indication: METASTASES TO BONE
     Dosage: 90 MG
     Route: 042
     Dates: start: 20050107, end: 20060516
  3. AROMASIN [Concomitant]
     Dosage: 25 MG/D
     Route: 048
     Dates: start: 20041025, end: 20051129

REACTIONS (6)
  - ADENOCARCINOMA [None]
  - HYPOAESTHESIA ORAL [None]
  - MALIGNANT NEOPLASM PROGRESSION [None]
  - MOUTH HAEMORRHAGE [None]
  - OSTEONECROSIS [None]
  - SUTURE REMOVAL [None]
